FAERS Safety Report 5764551-X (Version None)
Quarter: 2008Q2

REPORT INFORMATION
  Report Type: 
  Country: None (occurrence: None)
  Receive Date: 20080610
  Receipt Date: 20080529
  Transmission Date: 20081010
  Serious: Yes (Other)
  Sender: FDA-Public Use
  Company Number: US-PFIZER INC-2008046275

PATIENT
  Sex: Male
  Weight: 94.8 kg

DRUGS (11)
  1. LYRICA [Suspect]
     Indication: STATUS EPILEPTICUS
  2. KEPPRA [Concomitant]
  3. DEPAKOTE [Concomitant]
  4. EFFEXOR XR [Concomitant]
  5. ZOLOFT [Concomitant]
  6. DIOVANE [Concomitant]
  7. AMLODIPINE [Concomitant]
  8. THIAMINE [Concomitant]
  9. VITAMIN CAP [Concomitant]
  10. LORAZEPAM [Concomitant]
  11. RISPERDAL [Concomitant]

REACTIONS (5)
  - CEREBRAL VENTRICLE DILATATION [None]
  - CONVULSION [None]
  - SHUNT MALFUNCTION [None]
  - SUDDEN HEARING LOSS [None]
  - VISUAL ACUITY REDUCED [None]
